FAERS Safety Report 6449421-6 (Version None)
Quarter: 2009Q4

REPORT INFORMATION
  Report Type: 
  Country: None (occurrence: None)
  Receive Date: 20091120
  Receipt Date: 20090918
  Transmission Date: 20100525
  Serious: Yes (Other)
  Sender: FDA-Public Use
  Company Number: US-PFIZER INC-2009171417

PATIENT
  Age: 30 Year
  Sex: Male

DRUGS (1)
  1. LINEZOLID [Suspect]
     Indication: BACTERIAL INFECTION
     Dosage: UNK
     Route: 048

REACTIONS (1)
  - TUBULOINTERSTITIAL NEPHRITIS [None]
